FAERS Safety Report 4717817-6 (Version None)
Quarter: 2005Q3

REPORT INFORMATION
  Report Type: 
  Country: None (occurrence: None)
  Receive Date: 20050715
  Receipt Date: 20040901
  Transmission Date: 20060218
  Serious: Yes (Life-Threatening, Other)
  Sender: FDA-Public Use
  Company Number: 2004-00456

PATIENT
  Sex: Male

DRUGS (1)
  1. INTEGRILIN [Suspect]
     Dosage: INTRAVENOUS
     Route: 042
     Dates: start: 20040831, end: 20040901

REACTIONS (1)
  - HAEMORRHAGE INTRACRANIAL [None]
